FAERS Safety Report 24976223 (Version 1)
Quarter: 2025Q1

REPORT INFORMATION
  Report Type: Spontaneous
  Country: US (occurrence: US)
  Receive Date: 20250217
  Receipt Date: 20250217
  Transmission Date: 20250409
  Serious: No
  Sender: ROCHE
  Company Number: US-ROCHE-10000202478

PATIENT

DRUGS (5)
  1. MYCOPHENOLATE MOFETIL [Suspect]
     Active Substance: MYCOPHENOLATE MOFETIL
     Indication: Juvenile idiopathic arthritis
     Route: 065
  2. AZATHIOPRINE [Suspect]
     Active Substance: AZATHIOPRINE
     Indication: Juvenile idiopathic arthritis
     Route: 065
  3. LEFLUNOMIDE [Suspect]
     Active Substance: LEFLUNOMIDE
     Indication: Juvenile idiopathic arthritis
     Route: 065
  4. METHOTREXATE [Suspect]
     Active Substance: METHOTREXATE
     Indication: Juvenile idiopathic arthritis
     Route: 058
  5. METHOTREXATE [Suspect]
     Active Substance: METHOTREXATE
     Route: 048

REACTIONS (13)
  - Pneumonia [Unknown]
  - Upper respiratory tract infection [Unknown]
  - Sinusitis [Unknown]
  - Influenza [Unknown]
  - COVID-19 [Unknown]
  - Ear infection [Unknown]
  - Helicobacter infection [Unknown]
  - Nail infection [Unknown]
  - Varicella [Unknown]
  - Pharyngitis streptococcal [Unknown]
  - Tonsillitis [Unknown]
  - Scarlet fever [Unknown]
  - Amoebiasis [Unknown]
